FAERS Safety Report 19767605 (Version 2)
Quarter: 2021Q3

REPORT INFORMATION
  Report Type: Spontaneous
  Country: FR (occurrence: FR)
  Receive Date: 20210830
  Receipt Date: 20210907
  Transmission Date: 20211014
  Serious: Yes (Hospitalization)
  Sender: FDA-Public Use
  Company Number: FR-UCBSA-2021041164

PATIENT
  Age: 56 Year
  Sex: Female

DRUGS (3)
  1. VIMPAT [Suspect]
     Active Substance: LACOSAMIDE
     Dosage: UNK
     Route: 048
     Dates: start: 20210216, end: 20210505
  2. GARDENAL [PHENOBARBITAL] [Suspect]
     Active Substance: PHENOBARBITAL
     Indication: EPILEPSY
     Route: 042
     Dates: start: 20210105, end: 20210108
  3. VIMPAT [Suspect]
     Active Substance: LACOSAMIDE
     Indication: EPILEPSY
     Dosage: 10 MG/ML, SOLUTION POUR PERFUSION (100MG PER DAY)
     Route: 042
     Dates: start: 20210108, end: 20210216

REACTIONS (3)
  - Pyrexia [Recovered/Resolved]
  - Eosinophilia [Not Recovered/Not Resolved]
  - Rash maculo-papular [Recovered/Resolved]

NARRATIVE: CASE EVENT DATE: 20210124
